FAERS Safety Report 10148725 (Version 1)
Quarter: 2014Q2

REPORT INFORMATION
  Report Type: Spontaneous
  Country: IT (occurrence: IT)
  Receive Date: 20140501
  Receipt Date: 20140501
  Transmission Date: 20141212
  Serious: Yes (Other)
  Sender: FDA-Public Use
  Company Number: 2014SP000211

PATIENT
  Age: 60 Year
  Sex: Female

DRUGS (2)
  1. CISPLATIN [Suspect]
     Indication: GASTRIC CANCER
     Route: 042
     Dates: start: 20130701, end: 20131211
  2. FLUOROURACIL [Concomitant]
     Indication: GASTRIC CANCER
     Route: 042

REACTIONS (4)
  - Off label use [Recovered/Resolved]
  - Chest discomfort [Recovered/Resolved]
  - Chest pain [Recovered/Resolved]
  - Pruritus [Recovered/Resolved]
